FAERS Safety Report 8111630 (Version 2)
Quarter: 2012Q4

REPORT INFORMATION
  Report Type: 
  Country: US (occurrence: US)
  Receive Date: 20110829
  Receipt Date: 20121206
  Transmission Date: 20130627
  Serious: Yes (Hospitalization, Other)
  Sender: FDA-Public Use
  Company Number: US-BAYER-2011-075433

PATIENT
  Age: 18 Year
  Sex: Female

DRUGS (5)
  1. YAZ [Suspect]
  2. YASMIN [Suspect]
     Indication: DYSMENORRHEA
  3. WELLBUTRIN [Concomitant]
  4. ORTHO TRI CYCLEN [Concomitant]
  5. LORCET [Concomitant]

REACTIONS (2)
  - Thrombosis [None]
  - Deep vein thrombosis [Recovered/Resolved]
